FAERS Safety Report 6782173-9 (Version None)
Quarter: 2010Q2

REPORT INFORMATION
  Report Type: 
  Country: None (occurrence: None)
  Receive Date: 20100520
  Receipt Date: 20090702
  Transmission Date: 20101027
  Serious: Yes (Other)
  Sender: FDA-Public Use
  Company Number: 2009236135

PATIENT
  Age: 62 Year
  Sex: Female
  Weight: 86 kg

DRUGS (11)
  1. PROVERA [Suspect]
     Indication: HORMONE REPLACEMENT THERAPY
     Dosage: 10 MG ; 2.5 MG, ORAL
     Route: 048
     Dates: start: 19910101, end: 19920201
  2. PROVERA [Suspect]
     Indication: HORMONE REPLACEMENT THERAPY
     Dosage: 10 MG ; 2.5 MG, ORAL
     Route: 048
     Dates: start: 19930301, end: 19930801
  3. PREMARIN [Suspect]
     Indication: HORMONE REPLACEMENT THERAPY
     Dosage: 0.9 MG ; 0.625 MG ; 0.625 MG ; 1.25 MG
     Dates: start: 19910101, end: 19910701
  4. PREMARIN [Suspect]
     Indication: HORMONE REPLACEMENT THERAPY
     Dosage: 0.9 MG ; 0.625 MG ; 0.625 MG ; 1.25 MG
     Dates: start: 19910701, end: 19920101
  5. PREMARIN [Suspect]
     Indication: HORMONE REPLACEMENT THERAPY
     Dosage: 0.9 MG ; 0.625 MG ; 0.625 MG ; 1.25 MG
     Dates: start: 19930301, end: 19941001
  6. PREMARIN [Suspect]
     Indication: HORMONE REPLACEMENT THERAPY
     Dosage: 0.9 MG ; 0.625 MG ; 0.625 MG ; 1.25 MG
     Dates: start: 19990201, end: 20021201
  7. ESTRADERM [Suspect]
     Indication: HORMONE REPLACEMENT THERAPY
     Dosage: 0.1 MG
     Dates: start: 19921201, end: 19921201
  8. CYCRIN [Suspect]
     Indication: HORMONE REPLACEMENT THERAPY
     Dosage: 2.5 MG ; 2.5 MG
     Dates: start: 19930901, end: 19960301
  9. CYCRIN [Suspect]
     Indication: HORMONE REPLACEMENT THERAPY
     Dosage: 2.5 MG ; 2.5 MG
     Dates: start: 19990101
  10. PREMPRO [Suspect]
     Indication: HORMONE REPLACEMENT THERAPY
     Dosage: 0.625/2.5MG
     Dates: start: 19960401, end: 19990201
  11. MEDROXYPROGESTERONE [Suspect]
     Indication: HORMONE REPLACEMENT THERAPY
     Dosage: 2.5 MG
     Dates: start: 20000101, end: 20021201

REACTIONS (1)
  - BREAST CANCER [None]
